FAERS Safety Report 4337562-9 (Version None)
Quarter: 2004Q2

REPORT INFORMATION
  Report Type: 
  Country: None (occurrence: None)
  Receive Date: 20040412
  Receipt Date: 20040412
  Transmission Date: 20050107
  Serious: Yes (Hospitalization)
  Sender: FDA-Public Use
  Company Number: None

PATIENT
  Sex: Male
  Weight: 94.3482 kg

DRUGS (14)
  1. HYDROCHLOROTHIAZIDE/TRIAMTERENE 25 / 37.5 MG [Suspect]
     Indication: HYPERTENSION
     Dosage: 25 / 37.5 MG DAILY ORAL
     Route: 048
     Dates: start: 20040101, end: 20040318
  2. FUROSEMIDE [Suspect]
     Indication: HYPERTENSION
     Dosage: 40 MG DAILY ORAL
     Route: 048
     Dates: start: 20040101, end: 20040318
  3. FUROSEMIDE [Suspect]
     Indication: OEDEMA
     Dosage: 40 MG DAILY ORAL
     Route: 048
     Dates: start: 20040101, end: 20040318
  4. POTASSIUM CHLORIDE [Concomitant]
  5. TRAZODONE HCL [Concomitant]
  6. ISOSORBIDE DINITRATE [Concomitant]
  7. RABEPRAZOLE SODIUM [Concomitant]
  8. ASPIRIN [Concomitant]
  9. ROSIGLITAZONE MALEATE [Concomitant]
  10. OXAPROZIN [Concomitant]
  11. HUMULIN 70/30 [Concomitant]
  12. METOPROLOL [Concomitant]
  13. ACETAMINOPHEN/CODEINE [Concomitant]
  14. SIMVASTATIN [Concomitant]

REACTIONS (4)
  - DIZZINESS [None]
  - FATIGUE [None]
  - HYPOTENSION [None]
  - TACHYCARDIA [None]
